FAERS Safety Report 4945906-X (Version None)
Quarter: 2006Q1

REPORT INFORMATION
  Report Type: 
  Country: None (occurrence: None)
  Receive Date: 20060117
  Receipt Date: 20050107
  Transmission Date: 20060701
  Serious: Yes (Hospitalization)
  Sender: FDA-Public Use
  Company Number: A03200500087

PATIENT
  Age: 52 Year
  Sex: Male

DRUGS (4)
  1. PLAVIX [Suspect]
     Indication: CORONARY ARTERIAL STENT INSERTION
     Dosage: 75 MG QD - ORAL
     Route: 048
     Dates: start: 20050101, end: 20050101
  2. ACETYLSALICYLIC ACID SRT [Concomitant]
  3. HEPARIN [Concomitant]
  4. EPTIFIBATIDE [Concomitant]

REACTIONS (1)
  - THROMBOTIC THROMBOCYTOPENIC PURPURA [None]
